FAERS Safety Report 10656771 (Version 2)
Quarter: 2015Q1

REPORT INFORMATION
  Report Type: Report from Study
  Country: US (occurrence: US)
  Receive Date: 20141217
  Receipt Date: 20150209
  Transmission Date: 20150720
  Serious: Yes (Life-Threatening, Other)
  Sender: FDA-Public Use
  Company Number: US-BEH-2014047124

PATIENT
  Age: 62 Year
  Sex: Female

DRUGS (1)
  1. PRIVIGEN [Suspect]
     Active Substance: HUMAN IMMUNOGLOBULIN G
     Dosage: MONTHLY
     Dates: end: 20141003

REACTIONS (14)
  - Cognitive disorder [Unknown]
  - Butterfly rash [Unknown]
  - Systemic lupus erythematosus [Unknown]
  - Headache [Unknown]
  - Autoimmune disorder [Unknown]
  - Multiple sclerosis relapse [Unknown]
  - Malaise [Unknown]
  - Arthropathy [Unknown]
  - Activities of daily living impaired [Unknown]
  - Aphasia [Unknown]
  - Pyrexia [Unknown]
  - Multiple sclerosis relapse [Unknown]
  - Central nervous system lesion [Unknown]
  - Headache [Unknown]

NARRATIVE: CASE EVENT DATE: 20141101
